FAERS Safety Report 10172195 (Version 1)
Quarter: 2014Q2

REPORT INFORMATION
  Report Type: Spontaneous
  Country: CN (occurrence: CN)
  Receive Date: 20140515
  Receipt Date: 20140515
  Transmission Date: 20141212
  Serious: Yes (Life-Threatening)
  Sender: FDA-Public Use
  Company Number: CN-BEH-2014042629

PATIENT
  Age: 6 Year
  Sex: Female

DRUGS (1)
  1. ALBUMIN [Suspect]
     Indication: SUPPLEMENTATION THERAPY
     Dosage: DOSE: UNKNOWN, FREQUENCY: ST, BATCH NO.: UNAVAILABLE, INFUSION FOR 3-5MINS
     Route: 041
     Dates: start: 20030619, end: 20030619

REACTIONS (14)
  - Anaphylactic shock [Recovered/Resolved]
  - Generalised erythema [Recovered/Resolved]
  - Skin swelling [Recovered/Resolved]
  - Pruritus [Recovered/Resolved]
  - Nausea [Recovered/Resolved]
  - Vomiting [Recovered/Resolved]
  - Eyelid oedema [Recovered/Resolved]
  - Conjunctival hyperaemia [Recovered/Resolved]
  - Dizziness [Recovered/Resolved]
  - Body temperature decreased [Recovered/Resolved]
  - Heart rate increased [Recovered/Resolved]
  - Blood pressure decreased [Recovered/Resolved]
  - Mental status changes [Recovered/Resolved]
  - Cold sweat [Recovered/Resolved]
